FAERS Safety Report 14546909 (Version 6)
Quarter: 2020Q2

REPORT INFORMATION
  Report Type: Spontaneous
  Country: US (occurrence: US)
  Receive Date: 20180219
  Receipt Date: 20200609
  Transmission Date: 20200713
  Serious: No
  Sender: FDA-Public Use
  Company Number: US-PFIZER INC-2018065697

PATIENT
  Age: 64 Year
  Sex: Female
  Weight: 76 kg

DRUGS (26)
  1. GENOTROPIN MQ [Suspect]
     Active Substance: SOMATROPIN
     Dosage: 0.4 MG, DAILY
     Route: 058
     Dates: start: 20090312, end: 20151025
  2. GENOTROPIN MQ [Suspect]
     Active Substance: SOMATROPIN
     Dosage: 0.4 MG, DAILY
     Route: 058
     Dates: start: 20170524
  3. GENOTROPIN MQ [Suspect]
     Active Substance: SOMATROPIN
     Dosage: 0.4 MG (5 DAYS PER WEEK)
     Route: 058
     Dates: start: 20180223
  4. XANAX [Concomitant]
     Active Substance: ALPRAZOLAM
     Dosage: UNK
  5. LEVOTHYROXINE. [Concomitant]
     Active Substance: LEVOTHYROXINE
     Indication: HYPOPITUITARISM
     Dosage: 125 UG, DAILY
     Dates: start: 199708
  6. RITALIN [Concomitant]
     Active Substance: METHYLPHENIDATE HYDROCHLORIDE
     Dosage: UNK
  7. GENOTROPIN MQ [Suspect]
     Active Substance: SOMATROPIN
     Dosage: 0.4 MG, DAILY
     Route: 058
     Dates: start: 201707
  8. CORTEF [Concomitant]
     Active Substance: HYDROCORTISONE
     Dosage: UNK
  9. PERCOCET [Concomitant]
     Active Substance: ACETAMINOPHEN\OXYCODONE HYDROCHLORIDE
     Dosage: UNK (OXYCODONE HYDROCHLORIDE: 7.5 MG/PARACETAMOL: 325 MG]
  10. SYNTHROID [Concomitant]
     Active Substance: LEVOTHYROXINE SODIUM
     Dosage: UNK
  11. GABAPENTIN. [Concomitant]
     Active Substance: GABAPENTIN
     Dosage: UNK
  12. GENOTROPIN MQ [Suspect]
     Active Substance: SOMATROPIN
     Indication: POSTPARTUM HYPOPITUITARISM
     Dosage: 0.4 MG, DAILY
     Route: 058
     Dates: start: 2009, end: 2013
  13. BUPROPION. [Concomitant]
     Active Substance: BUPROPION
     Dosage: UNK
  14. CYMBALTA [Concomitant]
     Active Substance: DULOXETINE HYDROCHLORIDE
     Dosage: UNK
  15. ATORVASTATIN [Concomitant]
     Active Substance: ATORVASTATIN
     Dosage: UNK
  16. NEURONTIN [Concomitant]
     Active Substance: GABAPENTIN
     Dosage: UNK
  17. VERAPAMIL [Concomitant]
     Active Substance: VERAPAMIL HYDROCHLORIDE
     Dosage: UNK
  18. HYDROCORTISONE. [Concomitant]
     Active Substance: HYDROCORTISONE
     Indication: HYPOPITUITARISM
     Dosage: 25 MG, 1X/DAY (20 MG AM, 5 MG PM)
     Dates: start: 200901
  19. GENOTROPIN MQ [Suspect]
     Active Substance: SOMATROPIN
     Dosage: 0.4 MG [5 DAYS WEEK]
     Dates: start: 20090326
  20. SOLU-MEDROL [Concomitant]
     Active Substance: METHYLPREDNISOLONE SODIUM SUCCINATE
     Dosage: UNK
  21. NAPROXEN. [Concomitant]
     Active Substance: NAPROXEN
     Dosage: UNK
  22. OMEGA 3 [Concomitant]
     Active Substance: OMEGA-3 FATTY ACIDS
     Dosage: UNK
  23. TRINTELLIX [Concomitant]
     Active Substance: VORTIOXETINE HYDROBROMIDE
     Dosage: UNK
  24. PREVACID [Concomitant]
     Active Substance: LANSOPRAZOLE
     Dosage: UNK
  25. LIPITOR [Concomitant]
     Active Substance: ATORVASTATIN CALCIUM
     Dosage: UNK
  26. OXYCODONE AND ACETAMINOPHEN [Concomitant]
     Active Substance: ACETAMINOPHEN\OXYCODONE HYDROCHLORIDE
     Dosage: UNK

REACTIONS (3)
  - Weight decreased [Recovered/Resolved]
  - Asthenia [Unknown]
  - Depression [Unknown]

NARRATIVE: CASE EVENT DATE: 201711
